FAERS Safety Report 7071536-2 (Version None)
Quarter: 2010Q4

REPORT INFORMATION
  Report Type: 
  Country: None (occurrence: None)
  Receive Date: 20101029
  Receipt Date: 20090916
  Transmission Date: 20110411
  Serious: No
  Sender: FDA-Public Use
  Company Number: A0808119A

PATIENT
  Sex: Female

DRUGS (1)
  1. ADVAIR DISKUS 100/50 [Suspect]
     Indication: ASTHMA

REACTIONS (1)
  - UPPER RESPIRATORY TRACT INFECTION [None]
